FAERS Safety Report 7641894-6 (Version None)
Quarter: 2011Q3

REPORT INFORMATION
  Report Type: 
  Country: None (occurrence: None)
  Receive Date: 20110728
  Receipt Date: 20100210
  Transmission Date: 20111222
  Serious: Yes (Hospitalization)
  Sender: FDA-Public Use
  Company Number: UA-ROCHE-792503

PATIENT
  Sex: Female
  Weight: 96.5 kg

DRUGS (5)
  1. BONEFOS [Concomitant]
     Dates: start: 20091029
  2. CAPECITABINE [Suspect]
     Dosage: CYCLE 3.:FROM D1 TO D14 EVERY 3 WEEKS, DOSE DELAYED.
     Route: 048
     Dates: start: 20100117
  3. ANALGIN [Concomitant]
     Dates: start: 20100119, end: 20100119
  4. CAPECITABINE [Suspect]
     Indication: BREAST CANCER
     Dosage: FILM-COATED TABLET, FROM D1 TO D14 EVERY 3 WEEKS.
     Route: 048
     Dates: start: 20091118
  5. CERUCAL [Concomitant]
     Dates: start: 20100119, end: 20100119

REACTIONS (1)
  - VASCULAR ENCEPHALOPATHY [None]
